FAERS Safety Report 19282875 (Version 4)
Quarter: 2021Q4

REPORT INFORMATION
  Report Type: Spontaneous
  Country: US (occurrence: US)
  Receive Date: 20210521
  Receipt Date: 20211006
  Transmission Date: 20220303
  Serious: Yes (Hospitalization, Other)
  Sender: FDA-Public Use
  Company Number: US-AMGEN-USASP2021074623

PATIENT
  Age: 48 Year
  Sex: Male
  Weight: 99.4 kg

DRUGS (10)
  1. NPLATE [Suspect]
     Active Substance: ROMIPLOSTIM
     Indication: Aplastic anaemia
     Dosage: MCG/KG/WEEK (90 MCG DOSE)
     Route: 058
     Dates: start: 20200306
  2. NPLATE [Suspect]
     Active Substance: ROMIPLOSTIM
     Dosage: 20 MICROGRAM/KILOGRAM, QWK
     Route: 058
     Dates: start: 20201208
  3. NPLATE [Suspect]
     Active Substance: ROMIPLOSTIM
     Dosage: 10 MICROGRAM/KILOGRAM, QWK
     Route: 058
     Dates: start: 20201208
  4. NPLATE [Suspect]
     Active Substance: ROMIPLOSTIM
     Dosage: 20 MCG/KG (1885 MCG)
     Route: 058
     Dates: start: 20201229
  5. NPLATE [Suspect]
     Active Substance: ROMIPLOSTIM
     Dosage: 16 MICROGRAM/KILOGRAM, QWK
     Route: 058
     Dates: start: 20210302
  6. NPLATE [Suspect]
     Active Substance: ROMIPLOSTIM
     Dosage: 20 MICROGRAM/KILOGRAM, QWK
     Route: 058
     Dates: start: 20210309
  7. ZINC [Concomitant]
     Active Substance: ZINC
  8. VITAMIN B12 [Concomitant]
     Active Substance: CYANOCOBALAMIN
  9. FERROUS SULFATE ANHYDROUS [Concomitant]
     Active Substance: FERROUS SULFATE ANHYDROUS
  10. MELOXICAM [Concomitant]
     Active Substance: MELOXICAM
     Indication: Pain

REACTIONS (3)
  - Hip arthroplasty [Unknown]
  - Therapeutic product effect decreased [Unknown]
  - Off label use [Unknown]

NARRATIVE: CASE EVENT DATE: 20200306
